FAERS Safety Report 6063037-5 (Version None)
Quarter: 2009Q1

REPORT INFORMATION
  Report Type: 
  Country: None (occurrence: None)
  Receive Date: 20090203
  Receipt Date: 20090127
  Transmission Date: 20090719
  Serious: Yes (Life-Threatening, Hospitalization, Disabling, Other)
  Sender: FDA-Public Use
  Company Number: US-MERCK-0812USA03257

PATIENT
  Age: 51 Year
  Sex: Female
  Weight: 70 kg

DRUGS (8)
  1. IVEMEND [Suspect]
     Indication: PROPHYLAXIS OF NAUSEA AND VOMITING
     Route: 042
     Dates: start: 20081215, end: 20081215
  2. RESTORIL [Concomitant]
     Route: 065
  3. INDERAL [Concomitant]
     Route: 065
  4. DEPAKOTE [Concomitant]
     Route: 065
  5. DOXORUBICIN [Concomitant]
     Indication: CHEMOTHERAPY
     Route: 041
     Dates: start: 20081215, end: 20081215
  6. CYTOXAN [Concomitant]
     Indication: CHEMOTHERAPY
     Route: 042
     Dates: start: 20081215, end: 20081215
  7. DECADRON [Concomitant]
     Indication: NAUSEA
     Route: 041
     Dates: start: 20081215, end: 20081215
  8. ALOXI [Concomitant]
     Indication: NAUSEA
     Route: 041
     Dates: start: 20081215, end: 20081215

REACTIONS (1)
  - HYPERSENSITIVITY [None]
